FAERS Safety Report 16741765 (Version 1)
Quarter: 2019Q3

REPORT INFORMATION
  Report Type: Spontaneous
  Country: US (occurrence: US)
  Receive Date: 20190826
  Receipt Date: 20190826
  Transmission Date: 20191005
  Serious: No
  Sender: FDA-Public Use
  Company Number: US-JNJFOC-20190828312

PATIENT
  Age: 75 Year
  Sex: Female
  Weight: 49.03 kg

DRUGS (5)
  1. ONDANSETRON [Concomitant]
     Active Substance: ONDANSETRON
     Indication: NAUSEA
     Route: 048
     Dates: start: 2019
  2. FAMOTIDINE. [Concomitant]
     Active Substance: FAMOTIDINE
     Route: 048
     Dates: start: 201908
  3. XARELTO [Suspect]
     Active Substance: RIVAROXABAN
     Indication: THROMBOSIS
     Route: 048
     Dates: start: 20190817, end: 20190819
  4. TRAMADOL. [Concomitant]
     Active Substance: TRAMADOL
     Indication: PAIN
     Route: 048
     Dates: start: 201905
  5. PANTOPRAZOLE [Concomitant]
     Active Substance: PANTOPRAZOLE
     Indication: GASTRIC DISORDER
     Route: 048

REACTIONS (1)
  - Malaise [Not Recovered/Not Resolved]

NARRATIVE: CASE EVENT DATE: 20190817
